FAERS Safety Report 5426149-2 (Version None)
Quarter: 2007Q3

REPORT INFORMATION
  Report Type: 
  Country: None (occurrence: None)
  Receive Date: 20070827
  Receipt Date: 20070822
  Transmission Date: 20080115
  Serious: Yes (Hospitalization, Disabling)
  Sender: FDA-Public Use
  Company Number: FR-ELI_LILLY_AND_COMPANY-FR200708004588

PATIENT
  Age: 62 Year
  Sex: Male

DRUGS (5)
  1. ZYPREXA [Suspect]
     Dosage: 7.5 MG, DAILY (1/D)
     Route: 048
     Dates: start: 20060615, end: 20070414
  2. REYATAZ [Concomitant]
     Indication: HIV INFECTION
     Dosage: 300 MG, DAILY (1/D)
     Route: 048
     Dates: start: 20050401
  3. VIDEX [Concomitant]
     Indication: HIV INFECTION
     Dosage: 250 MG, DAILY (1/D)
     Route: 048
     Dates: start: 20050401
  4. EPIVIR [Concomitant]
     Indication: HIV INFECTION
     Dosage: 300 MG, DAILY (1/D)
     Route: 048
     Dates: start: 20050401
  5. NORVIR [Concomitant]
     Indication: HIV INFECTION
     Dosage: 100 MG, DAILY (1/D)
     Route: 048
     Dates: start: 20050415

REACTIONS (4)
  - ANTIVIRAL DRUG LEVEL ABOVE THERAPEUTIC [None]
  - EXTRAPYRAMIDAL DISORDER [None]
  - MITOCHONDRIAL CYTOPATHY [None]
  - TUBULOINTERSTITIAL NEPHRITIS [None]
